FAERS Safety Report 6657166-2 (Version None)
Quarter: 2010Q1

REPORT INFORMATION
  Report Type: 
  Country: None (occurrence: None)
  Receive Date: 20100330
  Receipt Date: 20100211
  Transmission Date: 20100710
  Serious: No
  Sender: FDA-Public Use
  Company Number: US-JNJFOC-20100206674

PATIENT

DRUGS (2)
  1. INVEGA SUSTENNA [Suspect]
     Indication: DRUG USE FOR UNKNOWN INDICATION
     Dosage: INITIAL UNSPECIFIED DOSE
     Route: 030
  2. INVEGA SUSTENNA [Suspect]
     Dosage: UNSPECIFIED MAINENTANCE DOSE
     Route: 030

REACTIONS (1)
  - DRUG INEFFECTIVE [None]
